FAERS Safety Report 13697474 (Version 1)
Quarter: 2017Q2

REPORT INFORMATION
  Report Type: Spontaneous
  Country: DE (occurrence: DE)
  Receive Date: 20170628
  Receipt Date: 20170628
  Transmission Date: 20170830
  Serious: Yes (Other)
  Sender: FDA-Public Use
  Company Number: DE-PFIZER INC-2017281475

PATIENT
  Sex: Male
  Weight: 72 kg

DRUGS (14)
  1. CISPLATIN. [Suspect]
     Active Substance: CISPLATIN
     Dosage: 40 MG IN 250 ML SODIUM CHLORIDE 0.9%
     Route: 042
     Dates: start: 20170523
  2. BLEOMYCIN SULFATE [Suspect]
     Active Substance: BLEOMYCIN SULFATE
     Indication: TESTIS CANCER
     Dosage: 30 MG, UNK
     Route: 040
     Dates: start: 20170519
  3. BLEOMYCIN SULFATE [Suspect]
     Active Substance: BLEOMYCIN SULFATE
     Dosage: 30 MG, UNK
     Route: 040
     Dates: start: 20170526
  4. ETOPOSID [Suspect]
     Active Substance: ETOPOSIDE
     Dosage: 200 MG IN 1.000 ML SODIUM CHLORIDE 0.9%
     Route: 042
     Dates: start: 20170520
  5. CISPLATIN. [Suspect]
     Active Substance: CISPLATIN
     Indication: TESTIS CANCER
     Dosage: 40 MG IN 250 ML SODIUM CHLORIDE 0.9%
     Route: 042
     Dates: start: 20170519
  6. ETOPOSID [Suspect]
     Active Substance: ETOPOSIDE
     Dosage: 200 MG IN 1.000 ML SODIUM CHLORIDE 0.9%
     Route: 042
     Dates: start: 20170521
  7. BLEOMYCIN SULFATE [Suspect]
     Active Substance: BLEOMYCIN SULFATE
     Dosage: 30 MG, UNK
     Route: 040
     Dates: start: 20170602
  8. CISPLATIN. [Suspect]
     Active Substance: CISPLATIN
     Dosage: 40 MG IN 250 ML SODIUM CHLORIDE 0.9%
     Route: 042
     Dates: start: 20170520
  9. CISPLATIN. [Suspect]
     Active Substance: CISPLATIN
     Dosage: 40 MG IN 250 ML SODIUM CHLORIDE 0.9 %
     Route: 042
     Dates: start: 20170521
  10. CISPLATIN. [Suspect]
     Active Substance: CISPLATIN
     Dosage: 40MG IN 250 ML SODIUM CHLORIDE 0.9%
     Route: 042
     Dates: start: 20170522
  11. PANTOPRAZOL [Concomitant]
     Active Substance: PANTOPRAZOLE SODIUM
     Indication: PROPHYLAXIS AGAINST GASTROINTESTINAL ULCER
     Dosage: 40 MG, UNK
     Route: 048
  12. ETOPOSID [Suspect]
     Active Substance: ETOPOSIDE
     Indication: TESTIS CANCER
     Dosage: 200 MG IN 1.000 ML SODIUM CHLORIDE 0.9%
     Route: 042
     Dates: start: 20170519
  13. ETOPOSID [Suspect]
     Active Substance: ETOPOSIDE
     Dosage: 200 MG IN 1.000 ML SODIUM CHLORIDE 0.9 %
     Route: 042
     Dates: start: 20170522
  14. ETOPOSID [Suspect]
     Active Substance: ETOPOSIDE
     Dosage: 200 MG IN 1.000 ML SODIUM CHLORIDE 0.9%
     Route: 042
     Dates: start: 20170523

REACTIONS (1)
  - Hepatic enzyme increased [Recovered/Resolved]
